FAERS Safety Report 6496354-5 (Version None)
Quarter: 2009Q4

REPORT INFORMATION
  Report Type: 
  Country: None (occurrence: None)
  Receive Date: 20091214
  Receipt Date: 20090319
  Transmission Date: 20100525
  Serious: No
  Sender: FDA-Public Use
  Company Number: US-ABBOTT-09P-163-0564052-00

PATIENT
  Sex: Male
  Weight: 72.64 kg

DRUGS (1)
  1. VICODIN ES [Suspect]
     Indication: PAIN MANAGEMENT

REACTIONS (2)
  - DYSPHAGIA [None]
  - FOREIGN BODY [None]
